FAERS Safety Report 14015341 (Version 2)
Quarter: 2017Q4

REPORT INFORMATION
  Report Type: Spontaneous
  Country: BR (occurrence: BR)
  Receive Date: 20170927
  Receipt Date: 20171023
  Transmission Date: 20180321
  Serious: Yes (Other)
  Sender: FDA-Public Use
  Company Number: BR-PFIZER INC-2017410621

PATIENT
  Age: 75 Year
  Sex: Female

DRUGS (8)
  1. AZOPT [Concomitant]
     Active Substance: BRINZOLAMIDE
     Indication: GLAUCOMA
     Dosage: UNK
  2. XALATAN [Suspect]
     Active Substance: LATANOPROST
     Indication: CATARACT
     Dosage: 4 GTT, DAILY (ONE DROP IN EACH EYE IN THE MORNING AND ONE DROP IN EACH EYE AT NIGHT)
     Route: 047
  3. CALCITRANS /00060701/ [Concomitant]
     Dosage: UNK
     Dates: start: 201710
  4. XALATAN [Suspect]
     Active Substance: LATANOPROST
     Indication: GLAUCOMA
     Dosage: 4 GTT, DAILY (ONE DROP IN EACH EYE IN THE MORNING AND ONE DROP IN EACH EYE AT NIGHT)
     Route: 047
     Dates: start: 2007
  5. XALATAN [Suspect]
     Active Substance: LATANOPROST
     Indication: INTRAOCULAR PRESSURE INCREASED
  6. ATACAND HCT [Concomitant]
     Active Substance: CANDESARTAN CILEXETIL\HYDROCHLOROTHIAZIDE
     Indication: HYPERTENSION
     Dosage: UNK
  7. AZOPT [Concomitant]
     Active Substance: BRINZOLAMIDE
     Indication: CATARACT
  8. OMEGA 3 /01333901/ [Concomitant]
     Active Substance: FISH OIL\TOCOPHEROL
     Dosage: UNK
     Dates: start: 201710

REACTIONS (4)
  - Eye pain [Not Recovered/Not Resolved]
  - Visual impairment [Not Recovered/Not Resolved]
  - Optic nerve injury [Not Recovered/Not Resolved]
  - Product use issue [Not Recovered/Not Resolved]

NARRATIVE: CASE EVENT DATE: 2013
